FAERS Safety Report 8666697 (Version 4)
Quarter: 2012Q4

REPORT INFORMATION
  Report Type: 
  Country: GB (occurrence: GB)
  Receive Date: 20120716
  Receipt Date: 20121009
  Transmission Date: 20130627
  Serious: Yes (Hospitalization, Other)
  Sender: FDA-Public Use
  Company Number: GB-009507513-2012SP036734

PATIENT
  Age: 63 Year
  Sex: Male

DRUGS (1)
  1. SYCREST [Suspect]
     Indication: MANIA
     Dosage: UNK, Unknown
     Route: 060

REACTIONS (3)
  - Sedation [Recovered/Resolved]
  - Pneumonia aspiration [Recovered/Resolved]
  - Respiratory failure [Recovered/Resolved]
